FAERS Safety Report 11224649 (Version 1)
Quarter: 2015Q2

REPORT INFORMATION
  Report Type: Spontaneous
  Country: GB (occurrence: GB)
  Receive Date: 20150629
  Receipt Date: 20150629
  Transmission Date: 20150821
  Serious: Yes (Other)
  Sender: FDA-Public Use
  Company Number: GB-MALLINCKRODT-T201503125

PATIENT
  Age: 43 Year
  Sex: Male

DRUGS (1)
  1. SODIUM IODIDE (I 131) CAPSULES T [Suspect]
     Active Substance: SODIUM IODIDE I-131
     Indication: RADIOTHERAPY
     Dosage: 400 MBQ, UNK
     Route: 065

REACTIONS (2)
  - Endocrine ophthalmopathy [Recovered/Resolved]
  - Hypothyroidism [Unknown]
